FAERS Safety Report 25772968 (Version 1)
Quarter: 2025Q3

REPORT INFORMATION
  Report Type: Spontaneous
  Country: US (occurrence: None)
  Receive Date: 20250905
  Receipt Date: 20250905
  Transmission Date: 20251020
  Serious: Yes (Death)
  Sender: FDA-CTU
  Company Number: None

PATIENT
  Age: 71 Year
  Sex: Male
  Weight: 105 kg

DRUGS (12)
  1. AIMOVIG [Suspect]
     Active Substance: ERENUMAB-AOOE
     Indication: Migraine
     Dosage: 70MG MONTHLY SUBCUTANEOUS
     Route: 058
     Dates: start: 20241025, end: 20250905
  2. QUTENZA [Suspect]
     Active Substance: CAPSAICIN
     Indication: Drug therapy
     Route: 061
     Dates: start: 20250205, end: 20250905
  3. accu-chek guide test strips/ Dexcom G6/ insulin glargin [Concomitant]
  4. alprazolam/ Doxazosin/ jardiance/ ozempic [Concomitant]
  5. amlodipine/ Duloxetine/ lantus/ oxy/ thyroid NP [Concomitant]
  6. arexvy inj/ Famciclovir/ levothyroxine/ topiramate [Concomitant]
  7. atorvastatin/ fenofibrate/ nifedipine/ tramadol [Concomitant]
  8. B-D nano pen needles/ freestyle libre 2/ omeprazole [Concomitant]
  9. buspirone/ gabapentin/ novolog/ one-touch/ ubrelvy [Concomitant]
  10. butalbital/acetaminophen/caff- glipizine/ semglee [Concomitant]
  11. chlorthalidone/ hydrocodon-acteam./ qulipta/ victoza [Concomitant]
  12. clonidine/insulin asparrtl paxlovic/ repatha/ valsartan [Concomitant]

REACTIONS (1)
  - Disease complication [None]

NARRATIVE: CASE EVENT DATE: 20250905
